FAERS Safety Report 12045931 (Version 3)
Quarter: 2016Q1

REPORT INFORMATION
  Report Type: Report from Study
  Country: ES (occurrence: ES)
  Receive Date: 20160209
  Receipt Date: 20160225
  Transmission Date: 20160526
  Serious: Yes (Hospitalization)
  Sender: FDA-Public Use
  Company Number: ES-AMGEN-ESPCT2016012157

PATIENT
  Age: 88 Year
  Sex: Female
  Weight: 54.5 kg

DRUGS (8)
  1. ENANTYUM [Concomitant]
     Active Substance: DEXKETOPROFEN TROMETAMOL
     Dosage: 50 MG, UNK
     Route: 048
     Dates: start: 20110101
  2. NIFEDIPINO [Concomitant]
     Dosage: 10 MG, UNK
     Route: 048
     Dates: start: 19960101
  3. OXICODONA [Concomitant]
     Dosage: 5 MG, UNK
     Route: 048
     Dates: start: 20151223
  4. LEXATIN                            /00424801/ [Concomitant]
     Active Substance: BROMAZEPAM
     Dosage: 1.5 MG, UNK
     Route: 048
     Dates: start: 20060101
  5. TALIMOGENE LAHERPAREPVEC [Suspect]
     Active Substance: TALIMOGENE LAHERPAREPVEC
     Indication: MALIGNANT MELANOMA
     Dosage: 2 ML, UNK
     Route: 026
     Dates: start: 20160113
  6. OMEPRAZOL                          /00661201/ [Concomitant]
     Active Substance: OMEPRAZOLE
     Dosage: 20 MG, UNK
     Route: 048
     Dates: start: 20110101
  7. EVACUOL                            /00362801/ [Concomitant]
     Dosage: 4 GTT, UNK
     Route: 048
     Dates: start: 20140101
  8. ORFIDAL [Concomitant]
     Active Substance: LORAZEPAM
     Dosage: 1 MG, UNK
     Route: 048
     Dates: start: 20130101

REACTIONS (1)
  - Cholecystitis [Recovered/Resolved]

NARRATIVE: CASE EVENT DATE: 20160130
